FAERS Safety Report 8028566-3 (Version None)
Quarter: 2012Q1

REPORT INFORMATION
  Report Type: 
  Country: None (occurrence: None)
  Receive Date: 20120106
  Receipt Date: 20110906
  Transmission Date: 20120608
  Serious: No
  Sender: FDA-Public Use
  Company Number: US-MYLANLABS-2011S1018786

PATIENT
  Sex: Female

DRUGS (2)
  1. AZATHIOPRINE [Suspect]
     Indication: COLITIS ULCERATIVE
     Route: 048
     Dates: start: 20110701, end: 20110817
  2. AZATHIOPRINE [Suspect]
     Route: 048
     Dates: start: 20110830

REACTIONS (2)
  - HEPATIC ENZYME INCREASED [None]
  - VOMITING [None]
